FAERS Safety Report 10075466 (Version 1)
Quarter: 2014Q2

REPORT INFORMATION
  Report Type: Spontaneous
  Country: US (occurrence: None)
  Receive Date: 20140411
  Receipt Date: 20140411
  Transmission Date: 20141212
  Serious: Yes (Hospitalization)
  Sender: FDA-Public Use
  Company Number: None

PATIENT
  Age: 88 Year
  Sex: Female
  Weight: 59.88 kg

DRUGS (9)
  1. DECITABINE [Suspect]
     Indication: ACUTE MYELOID LEUKAEMIA
     Dosage: 20MG/M2; QDX10;28DAYCYCLE
     Dates: start: 20140207
  2. ATORVASTATIN CALCIUM [Concomitant]
  3. BENZONATATE [Concomitant]
  4. CIPROFLOXACIN HCI [Concomitant]
  5. CLOTRIMAZOLE [Concomitant]
  6. ENOXAPARIN SODIUM [Concomitant]
  7. FAMOTIDINE [Concomitant]
  8. LEVOTHYROXINE SODIUM [Concomitant]
  9. MAGIC MOUTHWASH [Concomitant]

REACTIONS (1)
  - Cerebrovascular accident [None]
